FAERS Safety Report 8458626-4 (Version None)
Quarter: 2012Q2

REPORT INFORMATION
  Report Type: 
  Country: None (occurrence: None)
  Receive Date: 20120622
  Receipt Date: 20120613
  Transmission Date: 20120825
  Serious: Yes (Hospitalization)
  Sender: FDA-Public Use
  Company Number: US-JNJFOC-20120607644

PATIENT
  Sex: Female
  Weight: 37.5 kg

DRUGS (12)
  1. IRON [Concomitant]
  2. MESALAMINE [Concomitant]
     Route: 048
  3. MULTI-VITAMINS [Concomitant]
  4. PREVACID [Concomitant]
  5. VITAMIN K TAB [Concomitant]
  6. PREDNISONE TAB [Concomitant]
  7. REMICADE [Suspect]
     Indication: COLITIS ULCERATIVE
     Route: 042
     Dates: end: 20120217
  8. ELAVIL [Concomitant]
  9. ZYRTEC [Concomitant]
  10. ANTIBIOTICS NOS [Concomitant]
     Indication: INFLAMMATORY BOWEL DISEASE
  11. VIACTIV CALCIUM CHEWS [Concomitant]
  12. MESALAMINE [Concomitant]
     Route: 054

REACTIONS (1)
  - COLITIS ULCERATIVE [None]
